FAERS Safety Report 6471466-0 (Version None)
Quarter: 2009Q4

REPORT INFORMATION
  Report Type: 
  Country: None (occurrence: None)
  Receive Date: 20091203
  Receipt Date: 20080228
  Transmission Date: 20100525
  Serious: Yes (Hospitalization)
  Sender: FDA-Public Use
  Company Number: TR-ELI_LILLY_AND_COMPANY-TR200802006958

PATIENT
  Age: 53 Year
  Sex: Male
  Weight: 73 kg

DRUGS (4)
  1. HUMALOG [Suspect]
     Indication: TYPE 2 DIABETES MELLITUS
     Dosage: 10 UNITS IN THE MORNING, IN THE NOON AND IN THE EVENING
     Route: 058
     Dates: start: 20080128
  2. HUMALOG [Suspect]
     Dosage: 10 U, AT LUNCH
     Route: 058
     Dates: start: 20080128
  3. HUMALOG [Suspect]
     Dosage: 10 U, EACH EVENING
     Route: 058
     Dates: start: 20080128
  4. LANTUS [Concomitant]
     Indication: TYPE 2 DIABETES MELLITUS
     Dosage: 16 UNITS AT NIGHT
     Route: 058
     Dates: start: 20080128

REACTIONS (1)
  - VASCULAR GRAFT [None]
